FAERS Safety Report 26138696 (Version 1)
Quarter: 2025Q4

REPORT INFORMATION
  Report Type: Report from Study
  Country: CA (occurrence: CA)
  Receive Date: 20251210
  Receipt Date: 20251210
  Transmission Date: 20260117
  Serious: Yes (Other)
  Sender: ROCHE
  Company Number: CA-ROCHE-3247519

PATIENT
  Sex: Female

DRUGS (20)
  1. RITUXAN [Suspect]
     Active Substance: RITUXIMAB
     Indication: Rheumatoid arthritis
     Dosage: DAY 1, DAY 15.
     Route: 042
     Dates: start: 20200205
  2. ZEPBOUND [Suspect]
     Active Substance: TIRZEPATIDE
     Indication: Weight decreased
  3. METHOTREXATE [Concomitant]
     Active Substance: METHOTREXATE
  4. METHOTREXATE [Concomitant]
     Active Substance: METHOTREXATE
  5. ASPIRIN [Concomitant]
     Active Substance: ASPIRIN
  6. ATACAND [Concomitant]
     Active Substance: CANDESARTAN CILEXETIL
  7. CANNABIS SATIVA SEED OIL\HERBALS [Concomitant]
     Active Substance: CANNABIS SATIVA SEED OIL\HERBALS
  8. DOMPERIDONE [Concomitant]
     Active Substance: DOMPERIDONE
  9. FOLIC ACID [Concomitant]
     Active Substance: FOLIC ACID
  10. HYDROCHLOROTHIAZIDE [Concomitant]
     Active Substance: HYDROCHLOROTHIAZIDE
  11. LIPITOR [Concomitant]
     Active Substance: ATORVASTATIN CALCIUM
  12. PREDNISONE [Concomitant]
     Active Substance: PREDNISONE
  13. RISEDRONATE SODIUM [Concomitant]
     Active Substance: RISEDRONATE SODIUM
  14. SOFLAX (CANADA) [Concomitant]
  15. SOLU-CORTEF [Concomitant]
     Active Substance: HYDROCORTISONE SODIUM SUCCINATE
     Route: 042
  16. SYNTHROID [Concomitant]
     Active Substance: LEVOTHYROXINE SODIUM
  17. PANTOPRAZOLE MAGNESIUM [Concomitant]
     Active Substance: PANTOPRAZOLE MAGNESIUM
  18. TYLENOL [Concomitant]
     Active Substance: ACETAMINOPHEN
     Route: 048
  19. HUMALOG [Concomitant]
     Active Substance: INSULIN LISPRO
  20. CHOLECALCIFEROL [Concomitant]
     Active Substance: CHOLECALCIFEROL

REACTIONS (2)
  - Bronchitis [Unknown]
  - Lower respiratory tract infection [Unknown]
